FAERS Safety Report 7491172-3 (Version None)
Quarter: 2011Q2

REPORT INFORMATION
  Report Type: 
  Country: None (occurrence: None)
  Receive Date: 20110519
  Receipt Date: 20110517
  Transmission Date: 20111010
  Serious: Yes (Hospitalization, Other)
  Sender: FDA-Public Use
  Company Number: US-PFIZER INC-2011106767

PATIENT
  Sex: Female
  Weight: 51.7 kg

DRUGS (11)
  1. PRISTIQ [Concomitant]
     Indication: DEPRESSION
     Dosage: 50 MG, UNK
     Route: 048
  2. OMEPRAZOLE [Concomitant]
     Indication: ULCER
  3. VICODIN [Concomitant]
     Indication: BONE PAIN
     Dosage: 7.5/750 MG DAILY
     Route: 048
  4. OMEPRAZOLE [Concomitant]
     Indication: GASTRITIS
     Dosage: 20 MG, 1X/DAY
     Route: 048
  5. ATIVAN [Concomitant]
     Indication: ANXIETY
     Dosage: 1 MG, UNK
     Route: 048
  6. MELATONIN [Concomitant]
     Indication: SLEEP DISORDER
     Dosage: 6 MG, UNK
     Route: 048
  7. KLONOPIN [Concomitant]
     Indication: ANXIETY
     Dosage: 1 MG, 1X/DAY
     Route: 048
  8. DICLOFENAC [Concomitant]
     Indication: MIGRAINE
     Dosage: 50 MG, UNK
     Route: 048
  9. KLONOPIN [Concomitant]
     Indication: SLEEP DISORDER
  10. VERAPAMIL [Concomitant]
     Indication: MIGRAINE
     Dosage: 40 MG, 3X/DAY
  11. LYRICA [Suspect]
     Indication: PAIN
     Dosage: 50 MG, 2X/DAY
     Route: 048
     Dates: start: 20110507, end: 20110514

REACTIONS (14)
  - ABASIA [None]
  - RED BLOOD CELL COUNT DECREASED [None]
  - MONOCYTE COUNT INCREASED [None]
  - RED CELL DISTRIBUTION WIDTH DECREASED [None]
  - BLOOD CREATININE DECREASED [None]
  - BLOOD URINE PRESENT [None]
  - MIGRAINE [None]
  - WHITE BLOOD CELL COUNT DECREASED [None]
  - MEAN CELL HAEMOGLOBIN CONCENTRATION INCREASED [None]
  - PLATELET COUNT DECREASED [None]
  - CARBON DIOXIDE INCREASED [None]
  - HAEMATOCRIT DECREASED [None]
  - BLOOD UREA DECREASED [None]
  - MOVEMENT DISORDER [None]
